FAERS Safety Report 17830633 (Version 2)
Quarter: 2021Q1

REPORT INFORMATION
  Report Type: Report from Study
  Country: CA (occurrence: CA)
  Receive Date: 20200527
  Receipt Date: 20210309
  Transmission Date: 20210419
  Serious: Yes (Congenital Anomaly, Other)
  Sender: FDA-Public Use
  Company Number: CA-JNJFOC-20200523015

PATIENT

DRUGS (1)
  1. REMICADE [Suspect]
     Active Substance: INFLIXIMAB
     Indication: CROHN^S DISEASE
     Route: 064
     Dates: start: 20170517

REACTIONS (3)
  - Foetal exposure during pregnancy [Unknown]
  - Congenital diaphragmatic hernia [Recovering/Resolving]
  - Pulmonary malformation [Recovering/Resolving]
